FAERS Safety Report 16539756 (Version 2)
Quarter: 2019Q3

REPORT INFORMATION
  Report Type: Spontaneous
  Country: US (occurrence: US)
  Receive Date: 20190708
  Receipt Date: 20190910
  Transmission Date: 20191004
  Serious: No
  Sender: FDA-Public Use
  Company Number: US-PFIZER INC-2019291909

PATIENT
  Age: 82 Year
  Sex: Male
  Weight: 88 kg

DRUGS (10)
  1. MUCINEX [Concomitant]
     Active Substance: GUAIFENESIN
     Dosage: 600 MG, UNK
     Dates: start: 2016
  2. CELEBREX [Suspect]
     Active Substance: CELECOXIB
     Indication: RHEUMATOID ARTHRITIS
     Dosage: 100 MG, DAILY
     Dates: start: 1992
  3. CELEBREX [Suspect]
     Active Substance: CELECOXIB
     Dosage: 200 MG, DAILY
     Dates: start: 2007
  4. XELJANZ [Suspect]
     Active Substance: TOFACITINIB CITRATE
     Indication: RHEUMATOID ARTHRITIS
     Dosage: 5 MG, 2X/DAY
     Route: 048
     Dates: start: 20180828
  5. MONTELUKAST [Concomitant]
     Active Substance: MONTELUKAST SODIUM
     Dosage: 10 MG, DAILY
     Dates: start: 2016
  6. PANTOPRAZOLE [Concomitant]
     Active Substance: PANTOPRAZOLE
     Dosage: 40 MG, UNK
     Dates: start: 2016
  7. FUROSEMIDE. [Concomitant]
     Active Substance: FUROSEMIDE
     Dosage: 20 MG, 2X/WEEK
     Dates: start: 2018
  8. ESTER C [Concomitant]
     Dosage: 1000 MG, 2X/WEEK
     Dates: start: 2006
  9. SIMVASTATIN. [Concomitant]
     Active Substance: SIMVASTATIN
     Dosage: 20 MG, DAILY
     Dates: start: 2016
  10. VIT D [Concomitant]
     Active Substance: VITAMIN D NOS
     Dosage: UNK UNK, DAILY
     Dates: start: 2016

REACTIONS (5)
  - Hot flush [Unknown]
  - Diarrhoea [Unknown]
  - Disease progression [Not Recovered/Not Resolved]
  - Dizziness [Not Recovered/Not Resolved]
  - Night sweats [Unknown]

NARRATIVE: CASE EVENT DATE: 20180828
